FAERS Safety Report 18581814 (Version 3)
Quarter: 2020Q4

REPORT INFORMATION
  Report Type: Report from Study
  Country: BR (occurrence: BR)
  Receive Date: 20201204
  Receipt Date: 20201217
  Transmission Date: 20210114
  Serious: Yes (Death, Life-Threatening, Other)
  Sender: FDA-Public Use
  Company Number: BR-GILEAD-2020-0494234

PATIENT
  Age: 76 Year
  Sex: Male
  Weight: 65 kg

DRUGS (32)
  1. TOCILIZUMAB. [Suspect]
     Active Substance: TOCILIZUMAB
     Indication: COVID-19 PNEUMONIA
     Dosage: UNK
     Route: 042
     Dates: start: 20200819, end: 20200819
  2. PARACETAMOL [Concomitant]
     Active Substance: ACETAMINOPHEN
     Indication: BACK PAIN
     Dosage: 60 GTT DROPS
     Dates: start: 20200817
  3. LASIX [Concomitant]
     Active Substance: FUROSEMIDE
     Indication: HYPERKALAEMIA
  4. ENCRISE [Concomitant]
  5. DOBUTAMINE [Concomitant]
     Active Substance: DOBUTAMINE HYDROCHLORIDE
  6. PRECEDEX [Concomitant]
     Active Substance: DEXMEDETOMIDINE HYDROCHLORIDE
     Indication: ANXIETY
     Dosage: 200 UG
     Dates: start: 20200817
  7. MIDAZOLAM. [Concomitant]
     Active Substance: MIDAZOLAM
  8. FUROSEMIDA [FUROSEMIDE] [Concomitant]
     Active Substance: FUROSEMIDE
     Indication: HYPERKALAEMIA
  9. MEROPENEM. [Concomitant]
     Active Substance: MEROPENEM
  10. INSULIN [Concomitant]
     Active Substance: INSULIN NOS
     Indication: HYPERKALAEMIA
  11. AZITHROMYCIN ANHYDROUS. [Concomitant]
     Active Substance: AZITHROMYCIN ANHYDROUS
     Indication: COVID-19
     Dosage: 500 MG
     Dates: start: 20200817
  12. COLISTIN [Concomitant]
     Active Substance: COLISTIN
  13. DIPYRONE [Concomitant]
     Active Substance: DIPYRONE
     Indication: COVID-19
     Dates: start: 20200817
  14. DEXAMETHASONE. [Concomitant]
     Active Substance: DEXAMETHASONE
     Indication: COVID-19
     Dosage: 1 DOSAGE FORM
     Dates: start: 20200817
  15. BIMATOPROST;TIMOLOL MALEATE [Concomitant]
     Indication: GLAUCOMA
     Dates: start: 20200817
  16. ENOXAPARIN [Concomitant]
     Active Substance: ENOXAPARIN
     Indication: EMBOLISM VENOUS
  17. NORADRENALINE (NORPINEPHRINE) [Concomitant]
     Active Substance: NOREPINEPHRINE
     Indication: COVID-19
  18. VANCOMICINA [VANCOMYCIN] [Concomitant]
     Active Substance: VANCOMYCIN
     Indication: BACTERIAL INFECTION
  19. HYDROCORTISONE. [Concomitant]
     Active Substance: HYDROCORTISONE
     Indication: SEPTIC SHOCK
  20. CYCLOBENZAPRINE. [Concomitant]
     Active Substance: CYCLOBENZAPRINE
     Indication: BACK PAIN
     Dosage: 5 MG
     Dates: start: 20200817
  21. BROMOPRIDA [Concomitant]
  22. OMEPRAZOLE. [Concomitant]
     Active Substance: OMEPRAZOLE
     Indication: GASTRIC ULCER
  23. GLUCOSE [Concomitant]
     Active Substance: DEXTROSE
     Indication: HYPOGLYCAEMIA
  24. RINGER LACTATED [Concomitant]
     Indication: COVID-19
     Dosage: 500 ML
     Dates: start: 20200817
  25. FINASTERIDE. [Concomitant]
     Active Substance: FINASTERIDE
     Indication: BENIGN PROSTATIC HYPERPLASIA
     Dosage: 5 MG
     Dates: start: 20200818
  26. BIMATOPROST. [Concomitant]
     Active Substance: BIMATOPROST
     Indication: GLAUCOMA
  27. REMDESIVIR. [Suspect]
     Active Substance: REMDESIVIR
     Indication: COVID-19 PNEUMONIA
     Dosage: 200 MG
     Route: 042
     Dates: start: 20200819
  28. FENTANIL [Concomitant]
     Active Substance: FENTANYL
     Indication: SEDATION
  29. ROCURONIUM [Concomitant]
     Active Substance: ROCURONIUM BROMIDE
     Indication: SEDATION
  30. CEFTRIAXONE. [Concomitant]
     Active Substance: CEFTRIAXONE
     Indication: COVID-19
     Dosage: 2 G
     Dates: start: 20200817
  31. AMIODARONE [Concomitant]
     Active Substance: AMIODARONE
     Indication: ATRIAL FIBRILLATION
  32. AMICACINA [AMIKACIN] [Concomitant]

REACTIONS (3)
  - Enterobacter infection [Not Recovered/Not Resolved]
  - Pulmonary embolism [Not Recovered/Not Resolved]
  - Septic shock [Fatal]

NARRATIVE: CASE EVENT DATE: 20200826
